FAERS Safety Report 8209165-7 (Version None)
Quarter: 2012Q1

REPORT INFORMATION
  Report Type: 
  Country: None (occurrence: None)
  Receive Date: 20120314
  Receipt Date: 20120305
  Transmission Date: 20120608
  Serious: Yes (Hospitalization)
  Sender: FDA-Public Use
  Company Number: US-BAYER-2011-086403

PATIENT
  Age: 16 Year
  Sex: Female
  Weight: 70.295 kg

DRUGS (8)
  1. DROSPIRENONE AND ETHINYL ESTRADIOL [Suspect]
     Indication: PREMENSTRUAL SYNDROME
     Dosage: UNK
     Dates: start: 20081001, end: 20100101
  2. BENTYL [Concomitant]
  3. ZOLOFT [Concomitant]
  4. YAZ [Suspect]
     Indication: PREMENSTRUAL SYNDROME
     Dosage: UNK
     Dates: start: 20081001, end: 20100101
  5. IBUPROFEN [Concomitant]
  6. MOTRIN [Concomitant]
  7. MIRALAX [Concomitant]
  8. ZANTAC [Concomitant]

REACTIONS (7)
  - GALLBLADDER DISORDER [None]
  - ANXIETY [None]
  - ABNORMAL BEHAVIOUR [None]
  - CHOLECYSTITIS CHRONIC [None]
  - INJURY [None]
  - PAIN [None]
  - DEPRESSION [None]
